FAERS Safety Report 4607896-9 (Version None)
Quarter: 2005Q1

REPORT INFORMATION
  Report Type: 
  Country: None (occurrence: None)
  Receive Date: 20050310
  Receipt Date: 20050225
  Transmission Date: 20050727
  Serious: Yes (Other)
  Sender: FDA-Public Use
  Company Number: ZA-2005-002757

PATIENT
  Sex: Male

DRUGS (1)
  1. MABCAPATH            (ALEMTUZUMAB) [Suspect]
     Indication: CHRONIC LYMPHOCYTIC LEUKAEMIA
     Dosage: 30 MG, INTRAVENOUS
     Route: 042
     Dates: start: 20050103, end: 20050201

REACTIONS (2)
  - BRAIN DAMAGE [None]
  - CONVULSION [None]
